FAERS Safety Report 8162828-4 (Version None)
Quarter: 2012Q1

REPORT INFORMATION
  Report Type: 
  Country: None (occurrence: None)
  Receive Date: 20120224
  Receipt Date: 20120214
  Transmission Date: 20120608
  Serious: Yes (Life-Threatening)
  Sender: FDA-Public Use
  Company Number: FR-JNJFOC-20120207820

PATIENT
  Age: 84 Year
  Sex: Female

DRUGS (7)
  1. SIMVASTATIN [Concomitant]
  2. XARELTO [Suspect]
     Route: 048
     Dates: start: 20111125, end: 20111222
  3. XARELTO [Suspect]
     Route: 048
     Dates: start: 20111125, end: 20111222
  4. LERCANIDIPINE [Concomitant]
  5. DESLORATADINE [Concomitant]
  6. XARELTO [Suspect]
     Indication: THROMBOSIS PROPHYLAXIS
     Route: 048
  7. XARELTO [Suspect]
     Indication: HIP ARTHROPLASTY
     Route: 048

REACTIONS (1)
  - VENOUS THROMBOSIS LIMB [None]
